FAERS Safety Report 10378391 (Version 4)
Quarter: 2014Q3

REPORT INFORMATION
  Report Type: Spontaneous
  Country: JP (occurrence: None)
  Receive Date: 20140807
  Receipt Date: 20140818
  Transmission Date: 20150326
  Serious: Yes (Death)
  Sender: FDA-Public Use
  Company Number: ADR-2014-01363

PATIENT
  Age: 69 Year
  Sex: Male
  Weight: 77 kg

DRUGS (1)
  1. GABALON INTRATHECAL [Suspect]
     Active Substance: BACLOFEN
     Dates: start: 20060630

REACTIONS (1)
  - Small intestine carcinoma [None]

NARRATIVE: CASE EVENT DATE: 20131114
